FAERS Safety Report 7559504-5 (Version None)
Quarter: 2011Q2

REPORT INFORMATION
  Report Type: 
  Country: None (occurrence: None)
  Receive Date: 20110621
  Receipt Date: 20110617
  Transmission Date: 20111010
  Serious: Yes (Other)
  Sender: FDA-Public Use
  Company Number: FR-ASTRAZENECA-2011SE33231

PATIENT
  Age: 704 Month
  Sex: Male
  Weight: 85 kg

DRUGS (1)
  1. CRESTOR [Suspect]
     Indication: HYPERCHOLESTEROLAEMIA
     Route: 048
     Dates: start: 20101230, end: 20110217

REACTIONS (5)
  - SUPERINFECTION [None]
  - DERMATOSIS [None]
  - STASIS DERMATITIS [None]
  - ECZEMA [None]
  - PRURITUS [None]
